FAERS Safety Report 16017468 (Version 2)
Quarter: 2021Q2

REPORT INFORMATION
  Report Type: Spontaneous
  Country: US (occurrence: US)
  Receive Date: 20190228
  Receipt Date: 20210405
  Transmission Date: 20210716
  Serious: Yes (Other)
  Sender: FDA-Public Use
  Company Number: PHEH2019US008328

PATIENT
  Sex: Male

DRUGS (1)
  1. TASIGNA [Suspect]
     Active Substance: NILOTINIB
     Indication: CHRONIC MYELOID LEUKAEMIA
     Dosage: 1 DF, BID
     Route: 048
     Dates: start: 2010, end: 2013

REACTIONS (14)
  - Coronary artery occlusion [Unknown]
  - Arteriosclerosis [Unknown]
  - Diabetes mellitus [Unknown]
  - Fatigue [Unknown]
  - Pain [Unknown]
  - Dyspnoea [Unknown]
  - Hypotension [Unknown]
  - Injury [Unknown]
  - Emotional distress [Unknown]
  - Sinus bradycardia [Unknown]
  - Chest discomfort [Unknown]
  - Coronary artery disease [Unknown]
  - Anxiety [Unknown]
  - Chest pain [Unknown]
